FAERS Safety Report 6836459-X (Version None)
Quarter: 2010Q3

REPORT INFORMATION
  Report Type: 
  Country: None (occurrence: None)
  Receive Date: 20100713
  Receipt Date: 20100706
  Transmission Date: 20110219
  Serious: Yes (Hospitalization)
  Sender: FDA-Public Use
  Company Number: JP-BRISTOL-MYERS SQUIBB COMPANY-14424279

PATIENT
  Age: 89 Year
  Sex: Male

DRUGS (2)
  1. MAXIPIME [Suspect]
     Indication: CHOLANGITIS
     Route: 041
     Dates: start: 20081117, end: 20081119
  2. DALACIN [Suspect]
     Indication: CHOLANGITIS
     Route: 041
     Dates: end: 20081119

REACTIONS (3)
  - ALTERED STATE OF CONSCIOUSNESS [None]
  - DYSKINESIA [None]
  - ENCEPHALOPATHY [None]
